FAERS Safety Report 6806835-X (Version None)
Quarter: 2010Q2

REPORT INFORMATION
  Report Type: 
  Country: None (occurrence: None)
  Receive Date: 20100629
  Receipt Date: 20100617
  Transmission Date: 20101027
  Serious: Yes (Hospitalization, Other)
  Sender: FDA-Public Use
  Company Number: FR-ELI_LILLY_AND_COMPANY-FR201006004711

PATIENT
  Sex: Female

DRUGS (15)
  1. GEMZAR [Suspect]
     Indication: LUNG ADENOCARCINOMA
     Dosage: UNK, UNKNOWN
     Route: 065
  2. CARBOPLATIN [Concomitant]
     Dosage: UNK, UNKNOWN
     Route: 065
  3. VENTOLIN [Concomitant]
     Dosage: UNK, AS NEEDED
     Route: 065
  4. SERETIDE DISKUS [Concomitant]
     Dosage: UNK, UNKNOWN
     Route: 065
  5. METFORMIN HCL [Concomitant]
     Dosage: UNK, UNKNOWN
     Route: 065
  6. FUROSEMIDE [Concomitant]
     Dosage: 40 MG, UNKNOWN
     Route: 065
  7. KALEORID [Concomitant]
     Dosage: 1000 MG, UNKNOWN
     Route: 065
  8. TAHOR [Concomitant]
     Dosage: 20 MG, UNKNOWN
     Route: 065
  9. RAMIPRIL [Concomitant]
     Dosage: 7.5 MG, UNKNOWN
     Route: 065
  10. ATARAX [Concomitant]
     Dosage: UNK, UNKNOWN
     Route: 065
  11. ZOLPIDEM [Concomitant]
     Dosage: UNK, UNKNOWN
     Route: 065
  12. PAROXETINE [Concomitant]
     Dosage: UNK, UNKNOWN
     Route: 065
  13. NEXIUM [Concomitant]
     Dosage: UNK, UNKNOWN
     Route: 065
  14. ALPRAZOLAM [Concomitant]
     Dosage: UNK, UNKNOWN
     Route: 065
  15. OROCAL D(3) [Concomitant]
     Dosage: UNK, UNKNOWN
     Route: 065

REACTIONS (8)
  - BRONCHITIS [None]
  - DIARRHOEA [None]
  - EPISTAXIS [None]
  - NASOPHARYNGITIS [None]
  - PANCYTOPENIA [None]
  - PETECHIAE [None]
  - SINUSITIS [None]
  - SKIN DISORDER [None]
